FAERS Safety Report 12853076 (Version 2)
Quarter: 2017Q1

REPORT INFORMATION
  Report Type: Spontaneous
  Country: US (occurrence: US)
  Receive Date: 20161017
  Receipt Date: 20170210
  Transmission Date: 20170428
  Serious: No
  Sender: FDA-Public Use
  Company Number: US-JAZZ-2016-US-014084

PATIENT
  Sex: Female

DRUGS (43)
  1. XYREM [Suspect]
     Active Substance: SODIUM OXYBATE
     Indication: INSOMNIA
     Dosage: 2.25 G, BID
     Route: 048
     Dates: start: 200405, end: 2004
  2. XYREM [Suspect]
     Active Substance: SODIUM OXYBATE
     Dosage: DOSE ADJUSTMENTS
     Route: 048
     Dates: start: 200904, end: 201505
  3. LYRICA [Suspect]
     Active Substance: PREGABALIN
     Indication: PRODUCT USED FOR UNKNOWN INDICATION
     Dosage: UNK
     Dates: start: 20160724, end: 20160726
  4. AMLODIPINE BESYLATE. [Concomitant]
     Active Substance: AMLODIPINE BESYLATE
  5. XANAX [Concomitant]
     Active Substance: ALPRAZOLAM
  6. XYREM [Suspect]
     Active Substance: SODIUM OXYBATE
     Dosage: 3 G, BID
     Route: 048
     Dates: start: 200903, end: 200904
  7. XYREM [Suspect]
     Active Substance: SODIUM OXYBATE
     Dosage: 4.5 G, SECOND DOSE
     Route: 048
     Dates: start: 201505
  8. ALPHA LIPOIC ACID [Concomitant]
     Active Substance: .ALPHA.-LIPOIC ACID
  9. VITAMIN E [Concomitant]
     Active Substance: .ALPHA.-TOCOPHEROL
  10. VSL 3 [Concomitant]
  11. T3 [Concomitant]
     Active Substance: LIOTHYRONINE SODIUM
  12. BACLOFEN. [Concomitant]
     Active Substance: BACLOFEN
  13. EVOXAC [Concomitant]
     Active Substance: CEVIMELINE HYDROCHLORIDE
  14. WELLBUTRIN [Concomitant]
     Active Substance: BUPROPION HYDROCHLORIDE
  15. MANGANESE GLUCONATE. [Concomitant]
     Active Substance: MANGANESE GLUCONATE
  16. MELATONIN [Concomitant]
     Active Substance: MELATONIN
  17. VITAMIN B1 [Concomitant]
     Active Substance: THIAMINE HYDROCHLORIDE
  18. VITAMIN D [Concomitant]
     Active Substance: CHOLECALCIFEROL
  19. OMEPRAZOLE. [Concomitant]
     Active Substance: OMEPRAZOLE
  20. FLUOXETINE [Concomitant]
     Active Substance: FLUOXETINE HYDROCHLORIDE
  21. COENZYME Q10 [Concomitant]
     Active Substance: UBIDECARENONE
  22. CRESTOR [Concomitant]
     Active Substance: ROSUVASTATIN CALCIUM
  23. NIACIN. [Concomitant]
     Active Substance: NIACIN
  24. ZINC CHELATE [Concomitant]
  25. LEXAPRO [Concomitant]
     Active Substance: ESCITALOPRAM OXALATE
  26. MAGNESIUM OXIDE. [Concomitant]
     Active Substance: MAGNESIUM OXIDE
  27. VITAMIN B12 [Concomitant]
     Active Substance: CYANOCOBALAMIN
  28. VITAMIN C [Concomitant]
     Active Substance: ASCORBIC ACID
  29. XYREM [Suspect]
     Active Substance: SODIUM OXYBATE
     Dosage: 3.75 G, FIRST DOSE
     Route: 048
     Dates: start: 201505
  30. VITAMIN D3 [Concomitant]
     Active Substance: CHOLECALCIFEROL
  31. ALPRAZOLAM. [Concomitant]
     Active Substance: ALPRAZOLAM
  32. CALCIUM +D [Concomitant]
     Active Substance: CALCIUM\VITAMIN D
  33. MEDROL [Concomitant]
     Active Substance: METHYLPREDNISOLONE
  34. VITAMIN B2 [Concomitant]
     Active Substance: RIBOFLAVIN
  35. COPPER [Concomitant]
     Active Substance: COPPER
  36. NAC [Concomitant]
  37. LISINOPRIL. [Concomitant]
     Active Substance: LISINOPRIL
  38. BIOTIN [Concomitant]
     Active Substance: BIOTIN
  39. FISH OIL [Concomitant]
     Active Substance: FISH OIL
  40. GLUCOSAMINE CHONDROITIN [Concomitant]
     Active Substance: CHONDROITIN SULFATE (BOVINE)\GLUCOSAMINE HYDROCHLORIDE
  41. SELENIUM [Concomitant]
     Active Substance: SELENIUM
  42. VALTREX [Concomitant]
     Active Substance: VALACYCLOVIR HYDROCHLORIDE
  43. VITAMIN B5 [Concomitant]
     Active Substance: PANTOTHENIC ACID

REACTIONS (2)
  - Drug ineffective [Unknown]
  - Fibromyalgia [Unknown]
